FAERS Safety Report 18999611 (Version 2)
Quarter: 2021Q1

REPORT INFORMATION
  Report Type: Spontaneous
  Country: US (occurrence: US)
  Receive Date: 20210311
  Receipt Date: 20210318
  Transmission Date: 20210420
  Serious: No
  Sender: FDA-Public Use
  Company Number: US-BAYER-2021-093499

PATIENT
  Age: 75 Year
  Sex: Male
  Weight: 72.6 kg

DRUGS (4)
  1. TYVASO [Suspect]
     Active Substance: TREPROSTINIL
     Indication: PULMONARY ARTERIAL HYPERTENSION
     Dosage: UNK
     Route: 048
     Dates: start: 20200807
  2. AMBRISENTAN [Suspect]
     Active Substance: AMBRISENTAN
     Indication: PULMONARY ARTERIAL HYPERTENSION
     Dosage: UNK
     Route: 065
  3. ORENITRAM [Suspect]
     Active Substance: TREPROSTINIL
     Indication: PULMONARY ARTERIAL HYPERTENSION
     Dosage: 2.25 MG
  4. ADEMPAS [Suspect]
     Active Substance: RIOCIGUAT
     Indication: PRODUCT USED FOR UNKNOWN INDICATION
     Dosage: UNK

REACTIONS (15)
  - Dizziness [Unknown]
  - Hypotension [Unknown]
  - Pain in jaw [None]
  - Vision blurred [Unknown]
  - Nasal congestion [Unknown]
  - Drug intolerance [Unknown]
  - Periorbital swelling [None]
  - Dyspnoea exertional [None]
  - Palpitations [None]
  - Dizziness exertional [Unknown]
  - Headache [Recovering/Resolving]
  - Paranasal sinus hypersecretion [Unknown]
  - Feeling abnormal [None]
  - Asthenia [None]
  - Fatigue [None]
